FAERS Safety Report 10100911 (Version 1)
Quarter: 2014Q2

REPORT INFORMATION
  Report Type: Spontaneous
  Country: CN (occurrence: CN)
  Receive Date: 20140423
  Receipt Date: 20140423
  Transmission Date: 20141212
  Serious: Yes (Other)
  Sender: FDA-Public Use
  Company Number: CN-ABBVIE-14P-035-1228781-00

PATIENT
  Age: 30 Year
  Sex: Male

DRUGS (6)
  1. VALPROATE SODIUM/VALPROIC ACID [Suspect]
     Indication: BIPOLAR DISORDER
     Route: 048
     Dates: start: 20130731, end: 20130814
  2. PALIPERIDONE [Suspect]
     Indication: PRODUCT USED FOR UNKNOWN INDICATION
  3. PALIPERIDONE [Suspect]
  4. SERTRALINE [Concomitant]
     Indication: PRODUCT USED FOR UNKNOWN INDICATION
  5. OXAZEPAM [Concomitant]
     Indication: PRODUCT USED FOR UNKNOWN INDICATION
  6. LITHIUM CARBONATE [Concomitant]
     Indication: PRODUCT USED FOR UNKNOWN INDICATION

REACTIONS (1)
  - Blood corticotrophin increased [Unknown]
